FAERS Safety Report 10696917 (Version 2)
Quarter: 2015Q1

REPORT INFORMATION
  Report Type: Spontaneous
  Country: IT (occurrence: IT)
  Receive Date: 20150108
  Receipt Date: 20150115
  Transmission Date: 20150721
  Serious: Yes (Other)
  Sender: FDA-Public Use
  Company Number: IT-PFIZER INC-2015000675

PATIENT
  Age: 77 Year
  Sex: Female

DRUGS (4)
  1. SEQUACOR [Concomitant]
     Active Substance: BISOPROLOL
     Dosage: 1 DF, UNK
     Route: 048
  2. AROMASIN [Suspect]
     Active Substance: EXEMESTANE
     Indication: BREAST CANCER
     Dosage: 25 MG, DAILY
     Route: 048
     Dates: start: 20140401, end: 20140901
  3. TAVOR [Concomitant]
     Active Substance: LORAZEPAM
     Dosage: 1 MG, UNK
     Route: 048
  4. LOSAPREX [Concomitant]
     Active Substance: LOSARTAN POTASSIUM
     Dosage: 2 DF, UNK
     Route: 048

REACTIONS (4)
  - Blood alkaline phosphatase increased [Recovering/Resolving]
  - Transaminases increased [Recovering/Resolving]
  - Gamma-glutamyltransferase increased [Recovering/Resolving]
  - Amylase increased [Recovering/Resolving]

NARRATIVE: CASE EVENT DATE: 20140722
